FAERS Safety Report 8320683-3 (Version None)
Quarter: 2012Q2

REPORT INFORMATION
  Report Type: 
  Country: None (occurrence: None)
  Receive Date: 20120430
  Receipt Date: 20120420
  Transmission Date: 20120825
  Serious: Yes (Other)
  Sender: FDA-Public Use
  Company Number: US-CELGENEUS-163-21880-12042528

PATIENT
  Sex: Male

DRUGS (2)
  1. ASTHMA MEDICATION [Concomitant]
     Indication: ASTHMA
     Route: 065
  2. REVLIMID [Suspect]
     Indication: MULTIPLE MYELOMA
     Dosage: 25 MILLIGRAM
     Route: 048
     Dates: start: 20120117

REACTIONS (2)
  - CALCULUS BLADDER [None]
  - ASTHMA [None]
